FAERS Safety Report 16024213 (Version 1)
Quarter: 2019Q1

REPORT INFORMATION
  Report Type: Report from Study
  Country: ES (occurrence: ES)
  Receive Date: 20190301
  Receipt Date: 20190301
  Transmission Date: 20190418
  Serious: Yes (Other)
  Sender: FDA-Public Use
  Company Number: ES-BAUSCH-BL-2019-006270

PATIENT
  Age: 19 Year
  Sex: Male

DRUGS (3)
  1. FENTANILO [Suspect]
     Active Substance: FENTANYL
     Indication: SEDATION
     Dosage: PC
     Route: 042
     Dates: start: 20180527, end: 20180530
  2. DEXAMETASONA [Suspect]
     Active Substance: DEXAMETHASONE
     Indication: PRODUCT USED FOR UNKNOWN INDICATION
     Route: 065
     Dates: start: 20180526
  3. CEFTRIAXONA [Suspect]
     Active Substance: CEFTRIAXONE
     Indication: MENINGITIS BACTERIAL
     Route: 042
     Dates: start: 20180526, end: 20180604

REACTIONS (2)
  - Condition aggravated [Unknown]
  - Hyperamylasaemia [Unknown]

NARRATIVE: CASE EVENT DATE: 20180530
